FAERS Safety Report 20548541 (Version 4)
Quarter: 2022Q4

REPORT INFORMATION
  Report Type: Report from Study
  Country: US (occurrence: US)
  Receive Date: 20220303
  Receipt Date: 20221125
  Transmission Date: 20230113
  Serious: Yes (Hospitalization, Other)
  Sender: FDA-Public Use
  Company Number: US-ABBVIE-22K-163-4298835-00

PATIENT
  Age: 28 Year
  Sex: Female
  Weight: 79.378 kg

DRUGS (13)
  1. HUMIRA [Suspect]
     Active Substance: ADALIMUMAB
     Indication: Crohn^s disease
     Dosage: CITRATE FREE?FORM STRENGTH: 40MG
     Route: 058
     Dates: start: 20220117, end: 2022
  2. HUMIRA [Suspect]
     Active Substance: ADALIMUMAB
     Indication: Inflammatory bowel disease
     Dosage: CITRATE FREE?FORM STRENGTH: 40MG
     Route: 058
     Dates: start: 20220317
  3. OMEPRAZOLE [Concomitant]
     Active Substance: OMEPRAZOLE
     Indication: Gastrooesophageal reflux disease
     Route: 048
     Dates: start: 2013
  4. DROSPIRENONE AND ETHINYL ESTRADIOL [Concomitant]
     Active Substance: DROSPIRENONE\ETHINYL ESTRADIOL
     Indication: Hormone level abnormal
     Dosage: 3-4.02 MG
     Route: 048
     Dates: start: 2016
  5. AZATHIOPRINE [Concomitant]
     Active Substance: AZATHIOPRINE
     Indication: Crohn^s disease
     Route: 048
     Dates: start: 202112
  6. Bacillus Coagulans-Inulin (PROBIOTIC) 1-250 BILLION-MG CAPS [Concomitant]
     Indication: Product used for unknown indication
  7. ondansetron (ZOFRAN) 4 mg [Concomitant]
     Indication: Product used for unknown indication
  8. dicyclomine (BENTYL) 20 MG tablet [Concomitant]
     Indication: Product used for unknown indication
  9. cyclobenzaprine (FLEXERIL) 5 MG tablet [Concomitant]
     Indication: Product used for unknown indication
     Dosage: TAKE 1 TABLET BY MOUTH 12 TABLET 3 TIMES DAILY
  10. budesonide (ENTOCORT EC) 3 mg 24 hr capsule [Concomitant]
     Indication: Product used for unknown indication
  11. ketorolac  15mg [Concomitant]
     Indication: Product used for unknown indication
  12. cholecalciferol (VITAMIN D-3) 125 mcg (5,000 units) tablet [Concomitant]
     Indication: Product used for unknown indication
     Dosage: TAKE 5,000 UNITS BY MOUTH DAILY
  13. acetaminophen (TYLENOL) 500 mg tablet [Concomitant]
     Indication: Product used for unknown indication

REACTIONS (11)
  - Intestinal obstruction [Recovering/Resolving]
  - Intestinal resection [Recovering/Resolving]
  - Gastric dilatation [Unknown]
  - Nausea [Unknown]
  - Abdominal pain [Unknown]
  - Fat intolerance [Unknown]
  - Vomiting [Unknown]
  - Ascites [Unknown]
  - Bladder dilatation [Unknown]
  - Large intestinal obstruction [Unknown]
  - Small intestinal stenosis [Unknown]

NARRATIVE: CASE EVENT DATE: 20220708
